FAERS Safety Report 7054071-7 (Version None)
Quarter: 2010Q4

REPORT INFORMATION
  Report Type: 
  Country: None (occurrence: None)
  Receive Date: 20101020
  Receipt Date: 20100922
  Transmission Date: 20110411
  Serious: Yes (Life-Threatening, Hospitalization)
  Sender: FDA-Public Use
  Company Number: FR-BAYER-201040329GPV

PATIENT
  Age: 74 Year
  Sex: Male

DRUGS (8)
  1. GLUCOR [Suspect]
     Indication: DIABETES MELLITUS
     Dosage: TOTAL DAILY DOSE: 150 MG  UNIT DOSE: 50 MG
     Route: 048
     Dates: start: 20100503, end: 20100517
  2. ATACAN [Concomitant]
  3. CARDENSIEL [Concomitant]
  4. LASIX [Concomitant]
  5. PRAVIGARD PAC (COPACKAGED) [Concomitant]
  6. PREVISCAN [Concomitant]
  7. DIAMICRON [Concomitant]
  8. TERAZOSIN HCL [Concomitant]

REACTIONS (1)
  - ACUTE GENERALISED EXANTHEMATOUS PUSTULOSIS [None]
